FAERS Safety Report 4820034-2 (Version None)
Quarter: 2005Q4

REPORT INFORMATION
  Report Type: 
  Country: None (occurrence: None)
  Receive Date: 20051031
  Receipt Date: 20050805
  Transmission Date: 20060501
  Serious: No
  Sender: FDA-Public Use
  Company Number: WAES 0508USA01400

PATIENT
  Sex: Female

DRUGS (5)
  1. EMEND [Suspect]
     Indication: CHEMOTHERAPY
     Dosage: SEE IMAGE
     Route: 048
  2. EMEND [Suspect]
     Indication: PROPHYLAXIS
     Dosage: SEE IMAGE
     Route: 048
  3. ANTINEOPLASITC (UNSPECIFIED) [Concomitant]
  4. THERAPY UNSPECIFIED [Concomitant]
  5. CISPLATIN [Concomitant]

REACTIONS (3)
  - INTENTIONAL DRUG MISUSE [None]
  - NAUSEA [None]
  - VOMITING [None]
